FAERS Safety Report 14929317 (Version 1)
Quarter: 2018Q2

REPORT INFORMATION
  Report Type: Spontaneous
  Country: RU (occurrence: RU)
  Receive Date: 20180523
  Receipt Date: 20180523
  Transmission Date: 20180711
  Serious: Yes (Hospitalization)
  Sender: FDA-Public Use
  Company Number: RU-ASTRAZENECA-2017SE96336

PATIENT
  Age: 62 Year
  Sex: Female
  Weight: 78 kg

DRUGS (7)
  1. VEROSPIRONE [Concomitant]
     Active Substance: SPIRONOLACTONE
  2. BETALOC [Concomitant]
     Active Substance: METOPROLOL TARTRATE
  3. INSULIN [Concomitant]
     Active Substance: INSULIN NOS
  4. SUPRASTINE [Concomitant]
  5. THROMBO ASS [Concomitant]
     Active Substance: ASPIRIN
  6. BRILINTA [Suspect]
     Active Substance: TICAGRELOR
     Indication: MYOCARDIAL INFARCTION
     Route: 048
     Dates: start: 201704
  7. ATORIS [Concomitant]
     Active Substance: ATORVASTATIN CALCIUM

REACTIONS (8)
  - Eye disorder [Recovered/Resolved]
  - Contusion [Recovering/Resolving]
  - Dysphonia [Not Recovered/Not Resolved]
  - Ear haemorrhage [Recovered/Resolved]
  - Hypersensitivity [Not Recovered/Not Resolved]
  - Epistaxis [Recovered/Resolved]
  - Headache [Recovered/Resolved]
  - Gingival bleeding [Recovered/Resolved]

NARRATIVE: CASE EVENT DATE: 20170825
